FAERS Safety Report 6530161-X (Version None)
Quarter: 2010Q1

REPORT INFORMATION
  Report Type: 
  Country: None (occurrence: None)
  Receive Date: 20100107
  Receipt Date: 20091230
  Transmission Date: 20100710
  Serious: Yes (Other)
  Sender: FDA-Public Use
  Company Number: US-ASTRAZENECA-2009SE33943

PATIENT
  Age: 44 Year
  Sex: Female

DRUGS (3)
  1. SEROQUEL [Suspect]
     Indication: DEMENTIA ALZHEIMER'S TYPE
     Route: 048
     Dates: start: 20050101
  2. DIAZEPAM [Concomitant]
  3. VALPROIC ACID [Concomitant]

REACTIONS (5)
  - ABASIA [None]
  - APHASIA [None]
  - CONVULSION [None]
  - DEPRESSION [None]
  - DRUG DOSE OMISSION [None]
